FAERS Safety Report 6934331 (Version 2)
Quarter: 2014Q1

REPORT INFORMATION
  Report Type: Spontaneous
  Country: US (occurrence: None)
  Receive Date: 20090227
  Receipt Date: 20140304
  Transmission Date: 20141002
  Serious: Yes (Hospitalization, Other)
  Sender: FDA-Public Use
  Company Number: RB-8942-2008

PATIENT
  Age: 0 Day
  Sex: Female

DRUGS (1)
  1. SUBOXONE (RECKITT BENCKISER) [Suspect]
     Indication: PRODUCT USED FOR UNKNOWN INDICATION
     Dosage: TRANSPLACENTAL
     Route: 064
     Dates: end: 20080110

REACTIONS (3)
  - Irritability [None]
  - Hypertonia [None]
  - Foetal exposure during pregnancy [None]
